FAERS Safety Report 7419158-5 (Version None)
Quarter: 2011Q2

REPORT INFORMATION
  Report Type: 
  Country: None (occurrence: None)
  Receive Date: 20110415
  Receipt Date: 20110412
  Transmission Date: 20111010
  Serious: Yes (Other)
  Sender: FDA-Public Use
  Company Number: BE-PFIZER INC-2011073546

PATIENT
  Age: 87 Year
  Sex: Male
  Weight: 80 kg

DRUGS (7)
  1. DAFLON [Concomitant]
     Dosage: UNK
     Route: 048
  2. CYMBALTA [Concomitant]
     Dosage: UNK
     Route: 048
  3. ZOCOR [Concomitant]
     Dosage: 20 MG, 1X/DAY
     Route: 048
  4. BISOPROLOL [Concomitant]
     Dosage: 10 MG, 1X/DAY
     Route: 048
  5. SINTROM [Concomitant]
     Dosage: UNK
     Route: 048
  6. LYRICA [Suspect]
     Indication: POLYNEUROPATHY CHRONIC
     Dosage: 150 MG, 2X/DAY
     Route: 048
     Dates: start: 20090602
  7. LASIX [Concomitant]
     Dosage: UNK
     Route: 048

REACTIONS (2)
  - LYMPHOEDEMA [None]
  - AORTIC ANEURYSM [None]
